FAERS Safety Report 10438560 (Version 3)
Quarter: 2015Q3

REPORT INFORMATION
  Report Type: Report from Study
  Country: US (occurrence: US)
  Receive Date: 20140908
  Receipt Date: 20150818
  Transmission Date: 20151125
  Serious: No
  Sender: FDA-Public Use
  Company Number: US-GILEAD-2014-0114179

PATIENT
  Age: 63 Year
  Sex: Male

DRUGS (1)
  1. AMBRISENTAN [Suspect]
     Active Substance: AMBRISENTAN
     Indication: LIVER DISORDER
     Dosage: 5 MG, QD
     Route: 065
     Dates: start: 20140814

REACTIONS (3)
  - Musculoskeletal stiffness [Unknown]
  - Dyspnoea [Unknown]
  - Swelling [Unknown]
